FAERS Safety Report 6445657-9 (Version None)
Quarter: 2009Q4

REPORT INFORMATION
  Report Type: 
  Country: None (occurrence: None)
  Receive Date: 20091118
  Receipt Date: 20091118
  Transmission Date: 20100525
  Serious: Yes (Other)
  Sender: FDA-Public Use
  Company Number: None

PATIENT
  Age: 5 Year
  Sex: Male
  Weight: 19.5047 kg

DRUGS (1)
  1. AZITHROMYCIN 200MG/5ML SUSP22.5ML GREENSTONE [Suspect]
     Indication: PHARYNGITIS STREPTOCOCCAL
     Dosage: 1.5 TEASPOON DAILY PO  2 DOSES GIVEN
     Route: 048
     Dates: start: 20091115, end: 20091116

REACTIONS (2)
  - CRYING [None]
  - TREMOR [None]
